FAERS Safety Report 8885692 (Version 2)
Quarter: 2012Q4

REPORT INFORMATION
  Report Type: 
  Country: BR (occurrence: BR)
  Receive Date: 20121102
  Receipt Date: 20121123
  Transmission Date: 20130627
  Serious: Yes (Other)
  Sender: FDA-Public Use
  Company Number: BR-AMGEN-BRASP2012069690

PATIENT
  Age: 58 Year
  Sex: Female
  Weight: 75 kg

DRUGS (7)
  1. ENBREL [Suspect]
     Indication: RHEUMATOID ARTHRITIS
     Dosage: 50 mg,qwk
     Route: 058
     Dates: start: 201208
  2. IBUPROFEN [Concomitant]
     Dosage: UNK
  3. CAPTOPRIL [Concomitant]
     Indication: BLOOD PRESSURE
     Dosage: UNK
  4. OMEPRAZOLE [Concomitant]
     Dosage: UNK
  5. FLUOXETINE [Concomitant]
     Dosage: UNK
  6. SINVASTON [Concomitant]
     Indication: BLOOD CHOLESTEROL ABNORMAL
     Dosage: UNK
  7. PARACETAMOL [Concomitant]
     Dosage: UNK

REACTIONS (6)
  - Application site hypersensitivity [Unknown]
  - Blood pressure increased [Unknown]
  - Injection site haematoma [Unknown]
  - Injection site erythema [Unknown]
  - Injection site warmth [Unknown]
  - Injection site swelling [Unknown]
